FAERS Safety Report 6185648-9 (Version None)
Quarter: 2009Q2

REPORT INFORMATION
  Report Type: 
  Country: None (occurrence: None)
  Receive Date: 20090507
  Receipt Date: 20090424
  Transmission Date: 20091009
  Serious: Yes (Hospitalization)
  Sender: FDA-Public Use
  Company Number: TPA2009A00786

PATIENT
  Age: 56 Year
  Sex: Female
  Weight: 86.1834 kg

DRUGS (8)
  1. ACTOS [Suspect]
     Indication: DIABETES MELLITUS
     Dosage: 30 MG, 1 IN 1 D, PER ORAL
     Route: 048
     Dates: start: 20050424
  2. GLUCOVANCE [Concomitant]
  3. DIGOXIN [Concomitant]
  4. PLAQUENIL (HYDOXYCHLOROQUINE SULFATE) [Concomitant]
  5. SINGULAIR [Concomitant]
  6. BENAZEPRIL HYDROCHLORIDE [Concomitant]
  7. IMURAN [Concomitant]
  8. PROCRIT [Concomitant]

REACTIONS (6)
  - ABDOMINAL PAIN UPPER [None]
  - ANAEMIA [None]
  - JOINT SWELLING [None]
  - NAUSEA [None]
  - PERICARDIAL EFFUSION [None]
  - PNEUMONIA [None]
